FAERS Safety Report 5724225-8 (Version None)
Quarter: 2008Q2

REPORT INFORMATION
  Report Type: 
  Country: None (occurrence: None)
  Receive Date: 20080430
  Receipt Date: 20080423
  Transmission Date: 20081010
  Serious: Yes (Hospitalization)
  Sender: FDA-Public Use
  Company Number: ES-MERCK-0804ESP00057

PATIENT
  Age: 72 Year
  Sex: Male

DRUGS (7)
  1. NOROXIN [Suspect]
     Indication: ANTIBIOTIC PROPHYLAXIS
     Route: 048
  2. FUROSEMIDE [Concomitant]
     Route: 065
  3. SPIRONOLACTONE [Concomitant]
     Route: 065
  4. CLARITHROMYCIN [Concomitant]
     Route: 065
  5. [THERAPY UNSPECIFIED] [Concomitant]
     Indication: ANTASTHMATIC DRUG LEVEL
     Route: 065
  6. LACTULOSE [Concomitant]
     Route: 065
  7. OMEPRAZOLE [Concomitant]
     Route: 065

REACTIONS (1)
  - PERITONITIS BACTERIAL [None]
